FAERS Safety Report 24638690 (Version 1)
Quarter: 2024Q4

REPORT INFORMATION
  Report Type: Spontaneous
  Country: ID (occurrence: ID)
  Receive Date: 20241119
  Receipt Date: 20241119
  Transmission Date: 20250115
  Serious: Yes (Hospitalization, Other)
  Sender: RANBAXY
  Company Number: ID-SUN PHARMACEUTICAL INDUSTRIES LTD-2024R1-479569

PATIENT
  Age: 24 Year
  Sex: Female

DRUGS (5)
  1. FOLIC ACID [Suspect]
     Active Substance: FOLIC ACID
     Indication: Vitamin supplementation
     Dosage: UNK
     Route: 065
  2. FERROUS SULFATE [Suspect]
     Active Substance: FERROUS SULFATE
     Indication: Vitamin supplementation
     Dosage: UNK
     Route: 065
  3. LEUCOVORIN CALCIUM [Suspect]
     Active Substance: LEUCOVORIN CALCIUM
     Indication: Vitamin supplementation
     Dosage: UNK
     Route: 065
  4. PROGESTERONE [Suspect]
     Active Substance: PROGESTERONE
     Indication: Product used for unknown indication
     Dosage: UNK
     Route: 065
  5. ISOXSUPRINE [Suspect]
     Active Substance: ISOXSUPRINE
     Indication: Product used for unknown indication
     Dosage: UNK
     Route: 065

REACTIONS (3)
  - Premature delivery [Unknown]
  - Vaginal haemorrhage [Unknown]
  - Exposure during pregnancy [Unknown]
